FAERS Safety Report 9240397 (Version 2)
Quarter: 2013Q3

REPORT INFORMATION
  Report Type: Spontaneous
  Country: US (occurrence: US)
  Receive Date: 20130418
  Receipt Date: 20130923
  Transmission Date: 20140515
  Serious: Yes (Disabling, Other)
  Sender: FDA-Public Use
  Company Number: US-SANOFI-AVENTIS-2013SA038848

PATIENT
  Age: 62 Year
  Sex: Male
  Weight: 89.35 kg

DRUGS (5)
  1. ELOXATIN [Suspect]
     Indication: COLORECTAL CANCER
     Dosage: EVERY TWO WEEKS
     Dates: start: 201208, end: 201208
  2. ELOXATIN [Suspect]
     Indication: COLORECTAL CANCER
     Route: 065
     Dates: start: 20120901, end: 20120901
  3. ELOXATIN [Suspect]
     Indication: COLORECTAL CANCER
     Route: 065
     Dates: start: 20121110, end: 20121110
  4. FU [Suspect]
     Indication: COLORECTAL CANCER
     Dates: start: 201208
  5. FOLINIC ACID [Suspect]
     Indication: COLORECTAL CANCER
     Dates: start: 201208

REACTIONS (14)
  - Carpal tunnel syndrome [Recovered/Resolved]
  - Peroneal nerve palsy [Unknown]
  - Foot deformity [Not Recovered/Not Resolved]
  - Muscle atrophy [Unknown]
  - Neuropathy peripheral [Not Recovered/Not Resolved]
  - Paraesthesia [Not Recovered/Not Resolved]
  - Muscular weakness [Not Recovered/Not Resolved]
  - Hypoaesthesia [Not Recovered/Not Resolved]
  - Immobile [Not Recovered/Not Resolved]
  - Abasia [Not Recovered/Not Resolved]
  - Myalgia [Not Recovered/Not Resolved]
  - Balance disorder [Not Recovered/Not Resolved]
  - Platelet count decreased [Unknown]
  - Dysuria [Unknown]
